FAERS Safety Report 14978950 (Version 1)
Quarter: 2018Q2

REPORT INFORMATION
  Report Type: Spontaneous
  Country: MX (occurrence: MX)
  Receive Date: 20180606
  Receipt Date: 20180606
  Transmission Date: 20180711
  Serious: Yes (Death, Hospitalization)
  Sender: FDA-Public Use
  Company Number: MX-TEVA-2018-MX-900028

PATIENT
  Age: 28 Year
  Sex: Male

DRUGS (24)
  1. HYDROCORTISONE. [Suspect]
     Active Substance: HYDROCORTISONE
     Route: 042
  2. VANCOMYCIN [Concomitant]
     Active Substance: VANCOMYCIN
     Route: 042
  3. CIPROFLOXACIN. [Concomitant]
     Active Substance: CIPROFLOXACIN
     Route: 042
  4. ROMIPLOSTIM [Concomitant]
     Active Substance: ROMIPLOSTIM
     Route: 058
  5. METRONIDAZOLE. [Concomitant]
     Active Substance: METRONIDAZOLE
     Route: 042
  6. TRIMETHOPRIM/SULFAMETHOXAZOLE [Concomitant]
     Active Substance: SULFAMETHOXAZOLE\TRIMETHOPRIM
     Dosage: TRIMETHOPRIM 800MG/SULFAMETHOXAZOLE 100MG
     Route: 042
  7. ALBUMIN [Concomitant]
     Active Substance: ALBUMIN HUMAN
     Dosage: STRESSDOSE, DUE TO THE HISTORY OF PREDNISONE USE IN THE PREVIOUS 3 MONTHS
     Route: 042
  8. MEROPENEM. [Concomitant]
     Active Substance: MEROPENEM
     Route: 042
  9. CLINDAMYCIN. [Concomitant]
     Active Substance: CLINDAMYCIN
     Route: 042
  10. NOREPINEPHRINE. [Concomitant]
     Active Substance: NOREPINEPHRINE
     Route: 042
  11. COLISTIN [Concomitant]
     Active Substance: COLISTIN
     Route: 042
  12. HYDROCORTISONE. [Suspect]
     Active Substance: HYDROCORTISONE
     Route: 042
  13. FUROSEMIDE. [Concomitant]
     Active Substance: FUROSEMIDE
     Route: 042
  14. LACTULAX [Concomitant]
     Route: 048
  15. TERLIPRESSIN [Concomitant]
     Active Substance: TERLIPRESSIN
     Route: 042
  16. DEXMEDETOMIDINE. [Concomitant]
     Active Substance: DEXMEDETOMIDINE
     Route: 042
  17. VITAMIN K [Concomitant]
     Active Substance: PHYTONADIONE
     Route: 042
  18. PREDNISONE. [Suspect]
     Active Substance: PREDNISONE
     Indication: HEPATITIS ALCOHOLIC
     Route: 048
  19. NOREPINEPHRINE. [Concomitant]
     Active Substance: NOREPINEPHRINE
     Route: 042
  20. COLISTIMETHATE [Concomitant]
     Active Substance: COLISTIMETHATE SODIUM
     Route: 042
  21. RIFAXIMIN. [Concomitant]
     Active Substance: RIFAXIMIN
     Route: 048
  22. CEFTAROLINE [Concomitant]
     Active Substance: CEFTAROLINE
     Route: 042
  23. ANIDULAFUNGIN [Concomitant]
     Active Substance: ANIDULAFUNGIN
     Route: 042
  24. LEVETIRACETAM. [Concomitant]
     Active Substance: LEVETIRACETAM
     Route: 042

REACTIONS (3)
  - Leukocytosis [Unknown]
  - Mucormycosis [Fatal]
  - Multiple organ dysfunction syndrome [Fatal]
